FAERS Safety Report 25787031 (Version 1)
Quarter: 2025Q3

REPORT INFORMATION
  Report Type: Report from Study
  Country: US (occurrence: US)
  Receive Date: 20250910
  Receipt Date: 20250910
  Transmission Date: 20251020
  Serious: Yes (Other)
  Sender: EMD SERONO INC
  Company Number: US-Merck Healthcare KGaA-2025045107

PATIENT
  Age: 48 Year
  Sex: Female

DRUGS (6)
  1. MAVENCLAD [Suspect]
     Active Substance: CLADRIBINE
     Indication: Multiple sclerosis
     Dates: start: 20220419, end: 20220424
  2. MAVENCLAD [Suspect]
     Active Substance: CLADRIBINE
     Dates: start: 20220516, end: 20220520
  3. MAVENCLAD [Suspect]
     Active Substance: CLADRIBINE
     Dates: start: 20230718, end: 20230722
  4. MAVENCLAD [Suspect]
     Active Substance: CLADRIBINE
     Dates: start: 20230812, end: 20230816
  5. MAVENCLAD [Suspect]
     Active Substance: CLADRIBINE
  6. MAVENCLAD [Suspect]
     Active Substance: CLADRIBINE

REACTIONS (4)
  - White blood cell count decreased [Unknown]
  - Pain [Unknown]
  - Heat exhaustion [Unknown]
  - Dehydration [Unknown]

NARRATIVE: CASE EVENT DATE: 20250501
